FAERS Safety Report 8794567 (Version 1)
Quarter: 2012Q4

REPORT INFORMATION
  Report Type: 
  Country: US (occurrence: US)
  Receive Date: 20120917
  Receipt Date: 20120917
  Transmission Date: 20130627
  Serious: No
  Sender: FDA-Public Use
  Company Number: US-009507513-1209USA006069

PATIENT

DRUGS (12)
  1. SAPHRIS [Suspect]
     Dosage: 5 mg, bid
     Route: 060
  2. ALENDRONATE SODIUM [Concomitant]
  3. AMLODIPINE [Concomitant]
  4. ASENAPINE MALEATE [Concomitant]
  5. CYANOCOBALAMIN [Concomitant]
  6. CITALOPRAM [Concomitant]
  7. FUROSEMIDE [Concomitant]
  8. LEVOTHYROXINE SODIUM [Concomitant]
  9. OMEPRAZOLE [Concomitant]
  10. KOLA [Concomitant]
  11. CRANBERRY [Concomitant]
  12. CALCIUM (UNSPECIFIED) [Concomitant]

REACTIONS (3)
  - Hypernatraemia [Unknown]
  - Hypophagia [Unknown]
  - Depressed level of consciousness [Unknown]
